FAERS Safety Report 15122880 (Version 2)
Quarter: 2024Q3

REPORT INFORMATION
  Report Type: Report from Study
  Country: ES (occurrence: ES)
  Receive Date: 20180709
  Receipt Date: 20240702
  Transmission Date: 20241016
  Serious: Yes (Death, Hospitalization)
  Sender: MYLAN
  Company Number: ES-KYOWA KIRIN-2018BKK000661

PATIENT
  Age: 59 Year
  Sex: Female

DRUGS (21)
  1. PREGABALIN [Suspect]
     Active Substance: PREGABALIN
     Indication: Analgesic therapy
     Dosage: 75 MILLIGRAM, Q8H
     Route: 065
  2. PREGABALIN [Suspect]
     Active Substance: PREGABALIN
     Dosage: 25 MILLIGRAM, QD, 25 MG, DINNER
     Route: 065
  3. FENTANYL [Suspect]
     Active Substance: FENTANYL\FENTANYL CITRATE
     Indication: Pain
     Dosage: 100 MICROGRAM, QD
     Route: 062
  4. FENTANYL [Suspect]
     Active Substance: FENTANYL\FENTANYL CITRATE
     Dosage: 150 MICROGRAM, QD
     Route: 062
  5. FENTANYL [Suspect]
     Active Substance: FENTANYL\FENTANYL CITRATE
     Dosage: 50 MICROGRAM, Q3D, 50 MCG/72H
     Route: 062
  6. TAPENTADOL [Suspect]
     Active Substance: TAPENTADOL
     Indication: Analgesic therapy
     Dosage: 25 MILLIGRAM, QD, 25 MG, LUNCH TIME
     Route: 065
  7. TAPENTADOL [Suspect]
     Active Substance: TAPENTADOL
     Dosage: UNK
     Route: 065
  8. FENTANYL [Suspect]
     Active Substance: FENTANYL\FENTANYL CITRATE
     Indication: Pain
     Dosage: 2 DOSAGE FORM, QD, 2 SUBLINGUAL FENTANYL RESCUE/ DAY
     Route: 060
  9. FENTANYL [Suspect]
     Active Substance: FENTANYL\FENTANYL CITRATE
     Indication: Breakthrough pain
     Dosage: 100 MICROGRAM, PRN 100 MCG, AT REQUESTED
     Route: 060
  10. FENTANYL [Suspect]
     Active Substance: FENTANYL\FENTANYL CITRATE
     Dosage: 200 MICROGRAM, PRN 200 UG, RESCUE
     Route: 060
  11. FENTANYL [Suspect]
     Active Substance: FENTANYL\FENTANYL CITRATE
     Dosage: 400 MICROGRAM, PRN
     Route: 060
  12. FENTANYL [Suspect]
     Active Substance: FENTANYL\FENTANYL CITRATE
     Dosage: 300 MICROGRAM, PRN
     Route: 060
  13. FENTANYL [Suspect]
     Active Substance: FENTANYL\FENTANYL CITRATE
     Dosage: 6 SUBLINGUAL FENTANYL RESCUES AT NIGHT
     Route: 060
  14. NALOXONE HYDROCHLORIDE\OXYCODONE HYDROCHLORIDE [Suspect]
     Active Substance: NALOXONE HYDROCHLORIDE\OXYCODONE HYDROCHLORIDE
     Indication: Analgesic therapy
     Dosage: 1 DOSAGE FORM, BID
     Route: 065
  15. AMITRIPTYLINE HYDROCHLORIDE [Suspect]
     Active Substance: AMITRIPTYLINE HYDROCHLORIDE
     Indication: Analgesic therapy
     Dosage: 10 MILLIGRAM, QD, 10 MG, DINNER
     Route: 065
  16. LIDOCAINE [Suspect]
     Active Substance: LIDOCAINE
     Indication: Analgesic therapy
     Dosage: 1 DOSAGE FORM, BID, 1 DF, Q12H
     Route: 061
  17. LIDOCAINE [Suspect]
     Active Substance: LIDOCAINE
     Dosage: 1 DOSAGE FORM, Q6H, 1 DF, Q6H
     Route: 061
  18. OXYCODONE [Suspect]
     Active Substance: OXYCODONE
     Indication: Analgesic therapy
     Dosage: 40 MILLIGRAM, BID, 40 MG/12H
     Route: 065
  19. ZOMETA [Concomitant]
     Active Substance: ZOLEDRONIC ACID
     Indication: EGFR gene mutation
     Dosage: 4 MILLIGRAM, MONTHLY
     Route: 065
  20. ERLOTINIB [Concomitant]
     Active Substance: ERLOTINIB
     Indication: EGFR gene mutation
     Dosage: 150 MILLIGRAM, QD
     Route: 065
  21. DEXAMETHASONE [Concomitant]
     Active Substance: DEXAMETHASONE
     Indication: Pain
     Dosage: 4 MILLIGRAM, BID
     Route: 065

REACTIONS (8)
  - Disease progression [Fatal]
  - Decreased appetite [Recovered/Resolved]
  - Insomnia [Recovered/Resolved]
  - Nausea [Recovered/Resolved]
  - Malaise [Recovered/Resolved]
  - Night sweats [Recovered/Resolved]
  - Rash [Unknown]
  - Inappropriate schedule of product administration [Unknown]
